FAERS Safety Report 25531445 (Version 1)
Quarter: 2025Q3

REPORT INFORMATION
  Report Type: Spontaneous
  Country: CN (occurrence: CN)
  Receive Date: 20250708
  Receipt Date: 20250708
  Transmission Date: 20251021
  Serious: Yes (Disabling)
  Sender: ABBVIE
  Company Number: CN-ABBVIE-6359471

PATIENT
  Age: 37 Year
  Sex: Female
  Weight: 67 kg

DRUGS (5)
  1. VENETOCLAX [Suspect]
     Active Substance: VENETOCLAX
     Indication: Acute leukaemia
     Dosage: 400 MILLIGRAM
     Route: 048
     Dates: start: 20250621, end: 20250630
  2. DAUNORUBICIN HYDROCHLORIDE [Suspect]
     Active Substance: DAUNORUBICIN HYDROCHLORIDE
     Indication: Acute leukaemia
     Dosage: 100 MILLIGRAM
     Route: 041
     Dates: start: 20250623, end: 20250624
  3. DEXTROSE [Concomitant]
     Active Substance: DEXTROSE MONOHYDRATE
     Indication: Vehicle solution use
     Dosage: 500 ML
     Route: 041
     Dates: start: 20250623, end: 20250628
  4. CYTARABINE [Suspect]
     Active Substance: CYTARABINE
     Indication: Acute leukaemia
     Dosage: 0.34 MILLIGRAM
     Route: 041
     Dates: start: 20250623, end: 20250628
  5. CYTARABINE [Suspect]
     Active Substance: CYTARABINE
     Indication: Acute leukaemia
     Dosage: 0.1 GRAM
     Route: 041
     Dates: start: 20250618, end: 20250620

REACTIONS (1)
  - Myelosuppression [Not Recovered/Not Resolved]

NARRATIVE: CASE EVENT DATE: 20250623
